FAERS Safety Report 5774759-5 (Version None)
Quarter: 2008Q2

REPORT INFORMATION
  Report Type: 
  Country: None (occurrence: None)
  Receive Date: 20080612
  Receipt Date: 20080610
  Transmission Date: 20081010
  Serious: Yes (Other)
  Sender: FDA-Public Use
  Company Number: A0732410A

PATIENT
  Sex: Female

DRUGS (1)
  1. ASPIRIN + CAFFEINE + PARACETAMOL (FORMULATION UNKNOWN)(ACETAMINOPHEN + [Suspect]
     Indication: DRUG USE FOR UNKNOWN INDICATION

REACTIONS (2)
  - DIALYSIS [None]
  - RENAL FAILURE [None]
